FAERS Safety Report 4868845-1 (Version None)
Quarter: 2005Q4

REPORT INFORMATION
  Report Type: 
  Country: None (occurrence: None)
  Receive Date: 20051223
  Receipt Date: 20051214
  Transmission Date: 20060501
  Serious: No
  Sender: FDA-Public Use
  Company Number: CLOF-10170

PATIENT
  Age: 4 Year
  Sex: Male

DRUGS (2)
  1. CLOFARABINE [Suspect]
     Dosage: 28 NG QD X 5 IV
     Route: 042
     Dates: start: 20051122, end: 20051126
  2. CYTARABINE [Concomitant]

REACTIONS (9)
  - BACTERIAL INFECTION [None]
  - BLOOD CULTURE POSITIVE [None]
  - BONE PAIN [None]
  - CHILLS [None]
  - HEPATOMEGALY [None]
  - HYPOPROTEINAEMIA [None]
  - MUCOSAL INFLAMMATION [None]
  - PYREXIA [None]
  - TRANSAMINASES INCREASED [None]
